FAERS Safety Report 17262163 (Version 1)
Quarter: 2020Q1

REPORT INFORMATION
  Report Type: Spontaneous
  Country: US (occurrence: US)
  Receive Date: 20200110
  Receipt Date: 20200110
  Transmission Date: 20200409
  Serious: Yes (Hospitalization)
  Sender: FDA-Public Use
  Company Number: None

PATIENT
  Sex: Male

DRUGS (17)
  1. CANDESARTAN. [Concomitant]
     Active Substance: CANDESARTAN
  2. ROSUVASTATIN. [Concomitant]
     Active Substance: ROSUVASTATIN
  3. MONTELUKAST [Concomitant]
     Active Substance: MONTELUKAST SODIUM
  4. OZEMPIC [Concomitant]
     Active Substance: SEMAGLUTIDE
  5. TAMSULOSIN [Concomitant]
     Active Substance: TAMSULOSIN
  6. CARVEDILOL. [Concomitant]
     Active Substance: CARVEDILOL
  7. REPATHA [Suspect]
     Active Substance: EVOLOCUMAB
     Indication: PRODUCT USED FOR UNKNOWN INDICATION
     Dosage: ?          OTHER FREQUENCY:Q2WKS;?
     Route: 058
     Dates: start: 20180716
  8. PROAIR HFA [Concomitant]
     Active Substance: ALBUTEROL SULFATE
  9. INCRUSE ELLIPTA [Concomitant]
     Active Substance: UMECLIDINIUM BROMIDE
  10. LANTUS [Concomitant]
     Active Substance: INSULIN GLARGINE
  11. PANTOPRAZOLE [Concomitant]
     Active Substance: PANTOPRAZOLE
  12. DULERA [Concomitant]
     Active Substance: FORMOTEROL FUMARATE DIHYDRATE\MOMETASONE FUROATE
  13. INVOKANA [Concomitant]
     Active Substance: CANAGLIFLOZIN
  14. GABAPENTIN. [Concomitant]
     Active Substance: GABAPENTIN
  15. NUCALA [Concomitant]
     Active Substance: MEPOLIZUMAB
  16. LEVOXYL [Concomitant]
     Active Substance: LEVOTHYROXINE SODIUM
  17. METFORMIN [Concomitant]
     Active Substance: METFORMIN HYDROCHLORIDE

REACTIONS (1)
  - Tumour excision [None]
